FAERS Safety Report 4917790-1 (Version None)
Quarter: 2006Q1

REPORT INFORMATION
  Report Type: 
  Country: None (occurrence: None)
  Receive Date: 20060221
  Receipt Date: 20050809
  Transmission Date: 20060701
  Serious: Yes (Life-Threatening, Hospitalization)
  Sender: FDA-Public Use
  Company Number: BG-SANOFI-SYNTHELABO-F01200501480

PATIENT
  Sex: Male

DRUGS (4)
  1. OXALIPLATIN [Suspect]
     Indication: COLON CANCER
     Route: 042
     Dates: start: 20050606, end: 20050719
  2. FLUOROURACIL [Suspect]
     Indication: COLON CANCER
     Dosage: FLUOROURACIL, 600MG BOLUS INJECTION AND 1000MG CONTINUOUS INFUSION BOTH GIVEN ON DAYS 1 AND 2
     Route: 042
     Dates: start: 20050606, end: 20050719
  3. LEUCOVORIN [Suspect]
     Indication: COLON CANCER
     Route: 042
     Dates: start: 20050606, end: 20050719
  4. BEVACIZUMAB [Suspect]
     Indication: COLON CANCER
     Dosage: Q2W
     Route: 042
     Dates: start: 20050606, end: 20050719

REACTIONS (2)
  - APPENDICITIS PERFORATED [None]
  - PERITONITIS [None]
